FAERS Safety Report 6276329-1 (Version None)
Quarter: 2009Q3

REPORT INFORMATION
  Report Type: 
  Country: None (occurrence: None)
  Receive Date: 20090722
  Receipt Date: 20090713
  Transmission Date: 20100115
  Serious: Yes (Hospitalization, Other)
  Sender: FDA-Public Use
  Company Number: US-JNJFOC-20090704311

PATIENT
  Sex: Male

DRUGS (3)
  1. RISPERDAL [Suspect]
     Indication: SCHIZOPHRENIA
     Route: 065
  2. RISPERIDONE GENERIC [Suspect]
     Indication: SCHIZOPHRENIA
     Route: 065
  3. ANTIPSYCHOTICS [Suspect]
     Indication: SCHIZOPHRENIA
     Route: 065

REACTIONS (4)
  - DRUG INEFFECTIVE [None]
  - HOSPITALISATION [None]
  - PSYCHOTIC DISORDER [None]
  - SUICIDAL IDEATION [None]
